FAERS Safety Report 6718485-4 (Version None)
Quarter: 2010Q2

REPORT INFORMATION
  Report Type: 
  Country: None (occurrence: None)
  Receive Date: 20100510
  Receipt Date: 20100428
  Transmission Date: 20101027
  Serious: Yes (Other)
  Sender: FDA-Public Use
  Company Number: GB-PFIZER INC-2010053445

PATIENT
  Age: 59 Year
  Sex: Male

DRUGS (2)
  1. CHAMPIX [Suspect]
     Indication: SMOKING CESSATION THERAPY
     Dosage: UNK
     Dates: end: 20100428
  2. DICLOFENAC [Concomitant]
     Dosage: 50 MG, 3X/DAY

REACTIONS (2)
  - ABNORMAL DREAMS [None]
  - KNEE OPERATION [None]
